FAERS Safety Report 8075890-4 (Version None)
Quarter: 2012Q1

REPORT INFORMATION
  Report Type: 
  Country: None (occurrence: None)
  Receive Date: 20120125
  Receipt Date: 20120125
  Transmission Date: 20120608
  Serious: Yes (Hospitalization)
  Sender: FDA-Public Use
  Company Number: None

PATIENT
  Age: 68 Year
  Sex: Male
  Weight: 87.3 kg

DRUGS (2)
  1. LISINOPRIL [Suspect]
     Indication: HYPERTENSION
     Dosage: MG PO
     Route: 048
     Dates: start: 20110927, end: 20111102
  2. LEVOFLOXACIN [Suspect]
     Indication: SURGERY
     Dosage: MG PO
     Route: 048
     Dates: start: 20111031, end: 20111102

REACTIONS (2)
  - SWELLING FACE [None]
  - ANGIOEDEMA [None]
